FAERS Safety Report 8774806 (Version 4)
Quarter: 2012Q4

REPORT INFORMATION
  Report Type: Report from Study
  Country: JP (occurrence: JP)
  Receive Date: 20120910
  Receipt Date: 20121031
  Transmission Date: 20130627
  Serious: Yes (Hospitalization)
  Sender: FDA-Public Use
  Company Number: JP-BAYER-2012-089747

PATIENT
  Age: 68 Year
  Sex: Male

DRUGS (3)
  1. SORAFENIB (RAF KINASE INHIBITOR) [Suspect]
     Indication: RENAL CANCER METASTATIC
     Dosage: 400 mg, BID
     Route: 048
     Dates: start: 20120802, end: 20120809
  2. SORAFENIB (RAF KINASE INHIBITOR) [Suspect]
     Indication: RENAL CANCER METASTATIC
     Dosage: 400 mg, QD
     Route: 048
     Dates: start: 20120827, end: 20120827
  3. MAGMITT [Concomitant]
     Indication: CONSTIPATION
     Dosage: Daily dose 750 mg
     Route: 048
     Dates: start: 201206, end: 20120823

REACTIONS (7)
  - Ileus paralytic [Recovering/Resolving]
  - Ileus [Recovered/Resolved]
  - Fatigue [None]
  - Palmar-plantar erythrodysaesthesia syndrome [Recovered/Resolved]
  - Pyrexia [None]
  - Abdominal pain [Recovering/Resolving]
  - Decreased appetite [Recovering/Resolving]
